FAERS Safety Report 8411481-0 (Version None)
Quarter: 2012Q2

REPORT INFORMATION
  Report Type: 
  Country: None (occurrence: None)
  Receive Date: 20120531
  Receipt Date: 20120531
  Transmission Date: 20120825
  Serious: Yes (Other)
  Sender: FDA-Public Use
  Company Number: None

PATIENT
  Sex: Female

DRUGS (1)
  1. TRAVATAN [Suspect]
     Indication: GLAUCOMA
     Dosage: 1 DROP EVENING EYE
     Dates: start: 20120501

REACTIONS (3)
  - ERYTHEMA [None]
  - HYPERAESTHESIA [None]
  - BLINDNESS [None]
